FAERS Safety Report 16626673 (Version 3)
Quarter: 2019Q3

REPORT INFORMATION
  Report Type: Spontaneous
  Country: CA (occurrence: CA)
  Receive Date: 20190724
  Receipt Date: 20190827
  Transmission Date: 20191004
  Serious: Yes (Life-Threatening, Other)
  Sender: FDA-Public Use
  Company Number: CA-TEVA-2019-CA-1082342

PATIENT
  Age: 44 Year
  Sex: Female

DRUGS (21)
  1. PREDNISONE. [Suspect]
     Active Substance: PREDNISONE
     Indication: HIDRADENITIS
     Route: 065
  2. ARISTOCORT [Suspect]
     Active Substance: TRIAMCINOLONE DIACETATE
     Indication: HIDRADENITIS
     Route: 065
  3. ARISTOCORT [Suspect]
     Active Substance: TRIAMCINOLONE DIACETATE
     Route: 026
  4. MINOCYCLINE [Suspect]
     Active Substance: MINOCYCLINE HYDROCHLORIDE
     Indication: HIDRADENITIS
     Route: 065
  5. MOXIFLOXACIN. [Suspect]
     Active Substance: MOXIFLOXACIN
     Indication: HIDRADENITIS
     Route: 065
  6. AMOXICILLIN/CLAVULANATE POTASSIUM [Suspect]
     Active Substance: AMOXICILLIN\CLAVULANATE POTASSIUM
     Indication: HIDRADENITIS
     Route: 065
  7. DOXYCYCLINE. [Suspect]
     Active Substance: DOXYCYCLINE
     Indication: HIDRADENITIS
     Route: 065
  8. METRONIDAZOLE. [Suspect]
     Active Substance: METRONIDAZOLE
     Route: 065
  9. ACZONE [Suspect]
     Active Substance: DAPSONE
     Indication: HIDRADENITIS
     Route: 061
  10. ROFACT (RIFAMPICIN) [Suspect]
     Active Substance: RIFAMPIN
     Indication: HIDRADENITIS
     Route: 065
  11. NORITATE [Suspect]
     Active Substance: METRONIDAZOLE
     Indication: HIDRADENITIS
     Route: 061
  12. CLINDA-T [CLINDAMYCIN PHOSPHATE] [Suspect]
     Active Substance: CLINDAMYCIN PHOSPHATE
     Indication: HIDRADENITIS
     Route: 061
  13. ACZONE [Suspect]
     Active Substance: DAPSONE
     Route: 065
  14. TETRACYCLINE [Suspect]
     Active Substance: TETRACYCLINE
     Indication: HIDRADENITIS
     Route: 065
  15. METRONIDAZOLE. [Suspect]
     Active Substance: METRONIDAZOLE
     Indication: HIDRADENITIS
     Route: 065
  16. CLINDA-T [CLINDAMYCIN PHOSPHATE] [Suspect]
     Active Substance: CLINDAMYCIN PHOSPHATE
     Route: 065
  17. ERTAPENEM. [Suspect]
     Active Substance: ERTAPENEM SODIUM
     Indication: HIDRADENITIS
     Route: 042
  18. NORITATE [Suspect]
     Active Substance: METRONIDAZOLE
     Route: 065
  19. ARESTIN [Suspect]
     Active Substance: MINOCYCLINE HYDROCHLORIDE
     Indication: HIDRADENITIS
     Route: 065
  20. ZINC. [Suspect]
     Active Substance: ZINC
     Indication: HIDRADENITIS
     Route: 065
  21. ISOTRETINOIN. [Suspect]
     Active Substance: ISOTRETINOIN
     Indication: HIDRADENITIS
     Route: 065

REACTIONS (12)
  - Drug ineffective [Unknown]
  - Treatment failure [Unknown]
  - Hidradenitis [Unknown]
  - Suicidal ideation [Unknown]
  - Pain [Unknown]
  - Mobility decreased [Unknown]
  - Scar [Unknown]
  - Skin lesion [Unknown]
  - Wound secretion [Unknown]
  - Drug intolerance [Unknown]
  - Condition aggravated [Unknown]
  - Skin odour abnormal [Unknown]
